FAERS Safety Report 15546804 (Version 2)
Quarter: 2018Q4

REPORT INFORMATION
  Report Type: Report from Study
  Country: US (occurrence: US)
  Receive Date: 20181024
  Receipt Date: 20181205
  Transmission Date: 20190205
  Serious: No
  Sender: FDA-Public Use
  Company Number: PHHY2018US134247

PATIENT
  Sex: Female
  Weight: 100.23 kg

DRUGS (1)
  1. COSENTYX [Suspect]
     Active Substance: SECUKINUMAB
     Indication: PSORIASIS
     Dosage: 300 MG, QMO
     Route: 058
     Dates: start: 201805

REACTIONS (10)
  - Rib fracture [Unknown]
  - Weight decreased [Unknown]
  - Sinusitis [Unknown]
  - Cough [Unknown]
  - Swollen tongue [Recovering/Resolving]
  - Bronchitis [Unknown]
  - Arthropod bite [Unknown]
  - Pruritus [Unknown]
  - Dysphagia [Unknown]
  - Muscle spasms [Unknown]
